FAERS Safety Report 25619880 (Version 1)
Quarter: 2025Q3

REPORT INFORMATION
  Report Type: Spontaneous
  Country: JP (occurrence: JP)
  Receive Date: 20250730
  Receipt Date: 20250730
  Transmission Date: 20251021
  Serious: Yes (Other)
  Sender: UCB
  Company Number: JP-UCBJ-CD202508968UCBPHAPROD

PATIENT
  Age: 4 Year
  Sex: Male

DRUGS (1)
  1. LEVETIRACETAM [Suspect]
     Active Substance: LEVETIRACETAM
     Indication: Temporal lobe epilepsy
     Route: 048

REACTIONS (3)
  - Altered state of consciousness [Unknown]
  - Agitation [Unknown]
  - Myoclonus [Unknown]
